FAERS Safety Report 4278503-2 (Version None)
Quarter: 2004Q1

REPORT INFORMATION
  Report Type: 
  Country: None (occurrence: None)
  Receive Date: 20040123
  Receipt Date: 20030428
  Transmission Date: 20041129
  Serious: Yes (Hospitalization)
  Sender: FDA-Public Use
  Company Number: WAES 0304USA02799

PATIENT
  Age: 76 Year
  Sex: Male
  Weight: 84 kg

DRUGS (6)
  1. TYLENOL [Concomitant]
     Dates: start: 19900101
  2. ASPIRIN [Concomitant]
     Dates: start: 19900101
  3. CELEBREX [Concomitant]
     Dates: start: 20010101
  4. ADVIL [Concomitant]
     Dates: start: 19900101
  5. VIOXX [Suspect]
     Indication: ARTHRALGIA
     Route: 048
     Dates: start: 20010321, end: 20010410
  6. CALAN [Concomitant]
     Dates: start: 19750101

REACTIONS (6)
  - DEHYDRATION [None]
  - DIVERTICULUM INTESTINAL HAEMORRHAGIC [None]
  - EMOTIONAL DISTRESS [None]
  - GASTRITIS ATROPHIC [None]
  - HELICOBACTER INFECTION [None]
  - NECK PAIN [None]
